FAERS Safety Report 25651528 (Version 1)
Quarter: 2025Q3

REPORT INFORMATION
  Report Type: Spontaneous
  Country: US (occurrence: US)
  Receive Date: 20250806
  Receipt Date: 20250806
  Transmission Date: 20251021
  Serious: Yes (Other)
  Sender: PFIZER
  Company Number: US-PFIZER INC-PV202500094450

PATIENT
  Sex: Female

DRUGS (3)
  1. PAXLOVID [Suspect]
     Active Substance: NIRMATRELVIR\RITONAVIR
     Indication: COVID-19 treatment
     Dates: start: 20250211, end: 20250225
  2. LINZESS [Suspect]
     Active Substance: LINACLOTIDE
     Indication: Constipation
     Route: 048
     Dates: start: 202412, end: 20250220
  3. CORTISONE [Concomitant]
     Active Substance: CORTISONE
     Indication: Eczema

REACTIONS (14)
  - Deafness [Unknown]
  - Blister [Unknown]
  - Constipation [Unknown]
  - Rash [Recovering/Resolving]
  - Rash papular [Recovering/Resolving]
  - Drug eruption [Recovering/Resolving]
  - Ear swelling [Unknown]
  - Feeling hot [Unknown]
  - Ear pain [Unknown]
  - Urticaria [Recovering/Resolving]
  - Rash macular [Recovering/Resolving]
  - Erythema [Recovering/Resolving]
  - Measles [Recovering/Resolving]
  - Inappropriate schedule of product administration [Unknown]

NARRATIVE: CASE EVENT DATE: 20250101
